FAERS Safety Report 10331887 (Version 1)
Quarter: 2014Q3

REPORT INFORMATION
  Report Type: Spontaneous
  Country: FI (occurrence: FI)
  Receive Date: 20140722
  Receipt Date: 20140722
  Transmission Date: 20150326
  Serious: Yes (Other)
  Sender: FDA-Public Use
  Company Number: FI-SA-2014SA093030

PATIENT
  Age: 77 Year
  Sex: Female

DRUGS (12)
  1. ARAVA [Suspect]
     Active Substance: LEFLUNOMIDE
     Indication: RHEUMATOID ARTHRITIS
     Route: 048
     Dates: start: 201308, end: 201402
  2. AMLODIPINE [Concomitant]
     Active Substance: AMLODIPINE BESYLATE
     Indication: HYPERTENSION
     Dosage: 5 MG
  3. JANUMET [Concomitant]
     Active Substance: METFORMIN HYDROCHLORIDE\SITAGLIPTIN PHOSPHATE
     Indication: DIABETES MELLITUS
     Dosage: 50/1000 MG
     Route: 048
  4. NEXIUM [Concomitant]
     Active Substance: ESOMEPRAZOLE MAGNESIUM
     Indication: PROPHYLAXIS
     Dosage: 20 MG
     Route: 048
  5. COZAAR COMP [Concomitant]
     Active Substance: HYDROCHLOROTHIAZIDE\LOSARTAN POTASSIUM
     Indication: HYPERTENSION
     Dosage: 100/12.5 MG
     Route: 048
  6. SIMVASTATIN. [Concomitant]
     Active Substance: SIMVASTATIN
     Indication: HYPERCHOLESTEROLAEMIA
     Dosage: 20 MG
     Route: 048
  7. KALCIPOS-D [Concomitant]
     Active Substance: CALCIUM CARBONATE\CHOLECALCIFEROL
     Indication: SKELETAL INJURY
     Dosage: 500 MG/400 IU
     Route: 048
  8. PREDNISOLONE. [Concomitant]
     Active Substance: PREDNISOLONE
     Indication: RHEUMATOID ARTHRITIS
     Dosage: 5 MG AND 7.5 MG
     Route: 048
     Dates: start: 201101
  9. ESCOR [Concomitant]
     Indication: HYPERTENSION
     Dosage: 8 MG
     Route: 048
  10. VAGIFEM [Concomitant]
     Active Substance: ESTRADIOL
     Indication: MENOPAUSAL SYMPTOMS
     Dosage: 10 MCG
     Route: 067
  11. DIFORMIN RETARD [Concomitant]
     Active Substance: METFORMIN HYDROCHLORIDE
     Indication: DIABETES MELLITUS
     Dosage: 1 G
     Route: 048
  12. MAREVAN [Concomitant]
     Active Substance: WARFARIN SODIUM
     Indication: THROMBOSIS PROPHYLAXIS
     Dosage: 3 MG?DOSE AND FREQUENCY: AS PER SEPERATE INSTRUCTIONS
     Route: 048

REACTIONS (3)
  - Paraesthesia [Recovered/Resolved]
  - Polyneuropathy [Recovered/Resolved]
  - Formication [Recovered/Resolved]

NARRATIVE: CASE EVENT DATE: 201401
